FAERS Safety Report 8105740-9 (Version None)
Quarter: 2012Q1

REPORT INFORMATION
  Report Type: 
  Country: None (occurrence: None)
  Receive Date: 20120201
  Receipt Date: 20120124
  Transmission Date: 20120608
  Serious: Yes (Other)
  Sender: FDA-Public Use
  Company Number: US-AMGEN-USASP2010012190

PATIENT
  Age: 61 Year
  Sex: Male
  Weight: 88.889 kg

DRUGS (4)
  1. ENBREL [Suspect]
     Indication: RHEUMATOID ARTHRITIS
     Dosage: 50 MG, QWK
     Route: 058
     Dates: start: 20110103, end: 20110117
  2. NEXIUM                             /01479303/ [Concomitant]
     Dosage: 40 MG, UNK
     Dates: start: 20100816
  3. CELEBREX [Concomitant]
     Dosage: 200 MG, UNK
     Dates: start: 20100816
  4. ENBREL [Suspect]
     Indication: PSORIASIS
     Dosage: 50 MG, QWK
     Dates: start: 20101224, end: 20110107

REACTIONS (16)
  - NAUSEA [None]
  - MIGRAINE [None]
  - VISION BLURRED [None]
  - ABDOMINAL PAIN [None]
  - OEDEMA PERIPHERAL [None]
  - PSORIASIS [None]
  - SWELLING FACE [None]
  - MICTURITION URGENCY [None]
  - CONSTIPATION [None]
  - URINARY RETENTION [None]
  - DIARRHOEA [None]
  - PYREXIA [None]
  - INJECTION SITE HAEMATOMA [None]
  - LOCAL SWELLING [None]
  - SKIN ODOUR ABNORMAL [None]
  - URINE OUTPUT DECREASED [None]
